FAERS Safety Report 23420927 (Version 1)
Quarter: 2024Q1

REPORT INFORMATION
  Report Type: Spontaneous
  Country: DK (occurrence: DK)
  Receive Date: 20240119
  Receipt Date: 20240119
  Transmission Date: 20240409
  Serious: Yes (Hospitalization)
  Sender: FDA-Public Use
  Company Number: DK-MACLEODS PHARMACEUTICALS US LTD-MAC2024045336

PATIENT

DRUGS (1)
  1. LOSARTAN [Suspect]
     Active Substance: LOSARTAN
     Indication: Essential hypertension
     Dosage: UNK
     Route: 065

REACTIONS (2)
  - Hepatotoxicity [Recovered/Resolved]
  - Chest pain [Recovered/Resolved]
